FAERS Safety Report 16834571 (Version 1)
Quarter: 2019Q3

REPORT INFORMATION
  Report Type: Spontaneous
  Country: CZ (occurrence: CZ)
  Receive Date: 20190920
  Receipt Date: 20190920
  Transmission Date: 20191005
  Serious: Yes (Hospitalization, Other)
  Sender: FDA-Public Use
  Company Number: CZ-MYLANLABS-2019M1086177

PATIENT
  Sex: Male

DRUGS (18)
  1. ZALTRAP [Suspect]
     Active Substance: ZIV-AFLIBERCEPT
     Indication: RECTAL CANCER
  2. TIPIRACIL [Suspect]
     Active Substance: TIPIRACIL
     Indication: RECTAL CANCER
     Dosage: TBL 3-0-3
     Route: 065
     Dates: start: 201804
  3. FLUOROURACIL. [Suspect]
     Active Substance: FLUOROURACIL
     Indication: RECTAL CANCER
  4. CAPECITABINE. [Suspect]
     Active Substance: CAPECITABINE
     Indication: RECTAL CANCER
     Dosage: 3-0-3 PER DAY
     Route: 048
     Dates: start: 201606
  5. ZALTRAP [Suspect]
     Active Substance: ZIV-AFLIBERCEPT
     Indication: METASTASES TO LUNG
     Dosage: UNK
     Route: 065
     Dates: start: 201712
  6. AVASTIN [Suspect]
     Active Substance: BEVACIZUMAB
     Indication: METASTATIC NEOPLASM
     Dosage: UNK
     Route: 065
     Dates: start: 201703
  7. IRINOTECAN [Suspect]
     Active Substance: IRINOTECAN
     Indication: METASTASES TO LUNG
     Dosage: UNK UNK, CYCLE
     Route: 065
     Dates: start: 201712
  8. OXALIPLATIN. [Suspect]
     Active Substance: OXALIPLATIN
     Indication: RECTAL CANCER
  9. FOLINIC ACID [Suspect]
     Active Substance: LEUCOVORIN
     Indication: METASTASES TO LUNG
     Dosage: UNK, CYCLE
     Dates: start: 201712
  10. XELODA [Suspect]
     Active Substance: CAPECITABINE
     Indication: METASTATIC NEOPLASM
     Dosage: UNK
     Route: 065
     Dates: start: 201703
  11. PERINDOPRIL [Concomitant]
     Active Substance: PERINDOPRIL
     Indication: HYPERTENSION
  12. AVASTIN [Suspect]
     Active Substance: BEVACIZUMAB
     Indication: RECTAL CANCER
  13. IRINOTECAN [Suspect]
     Active Substance: IRINOTECAN
     Indication: RECTAL CANCER
  14. TRIFLURIDINE. [Suspect]
     Active Substance: TRIFLURIDINE
     Indication: METASTASES TO LUNG
     Dosage: 60 MILLIGRAM, BID, 3-0-3
     Dates: start: 201804
  15. TRIFLURIDINE. [Suspect]
     Active Substance: TRIFLURIDINE
     Indication: RECTAL CANCER
  16. OXALIPLATIN. [Suspect]
     Active Substance: OXALIPLATIN
     Indication: METASTATIC NEOPLASM
     Dosage: 8 UNK, CYCLE
     Route: 065
     Dates: start: 201703
  17. FLUOROURACIL. [Suspect]
     Active Substance: FLUOROURACIL
     Indication: METASTASES TO LUNG
     Dosage: UNK UNK, CYCLE
     Route: 065
     Dates: start: 201712
  18. CAPECITABINE. [Suspect]
     Active Substance: CAPECITABINE
     Dosage: UNK
     Route: 065
     Dates: start: 201703

REACTIONS (10)
  - Diarrhoea [Unknown]
  - Dyspepsia [Unknown]
  - Mucosal inflammation [Unknown]
  - Leukopenia [Unknown]
  - Disease progression [Unknown]
  - Neuropathy peripheral [Not Recovered/Not Resolved]
  - Neutropenia [Unknown]
  - Peritonsillar abscess [Unknown]
  - Weight decreased [Unknown]
  - Skin toxicity [Unknown]

NARRATIVE: CASE EVENT DATE: 201606
